FAERS Safety Report 21744883 (Version 2)
Quarter: 2023Q1

REPORT INFORMATION
  Report Type: Spontaneous
  Country: JP (occurrence: JP)
  Receive Date: 20221219
  Receipt Date: 20230220
  Transmission Date: 20230418
  Serious: Yes (Hospitalization, Other)
  Sender: FDA-Public Use
  Company Number: JP-TAKEDA-2022TJP075453

PATIENT
  Age: 75 Year
  Sex: Male
  Weight: 52 kg

DRUGS (20)
  1. VECTIBIX [Suspect]
     Active Substance: PANITUMUMAB
     Indication: Colorectal cancer metastatic
     Dosage: 320 MILLIGRAM, QD
     Route: 040
     Dates: start: 20220511, end: 20220511
  2. VECTIBIX [Suspect]
     Active Substance: PANITUMUMAB
     Dosage: 300 MILLIGRAM, Q3WK
     Route: 040
     Dates: start: 20220601, end: 20220831
  3. OXALIPLATIN [Suspect]
     Active Substance: OXALIPLATIN
     Indication: Colorectal cancer metastatic
     Dosage: 130 MILLIGRAM, Q3WK
     Route: 041
     Dates: start: 20220511, end: 20220601
  4. OXALIPLATIN [Suspect]
     Active Substance: OXALIPLATIN
     Dosage: 100 MILLIGRAM, Q3WEEKS
     Route: 041
     Dates: start: 20220622, end: 20220831
  5. LEVOLEUCOVORIN CALCIUM [Suspect]
     Active Substance: LEVOLEUCOVORIN CALCIUM
     Indication: Colorectal cancer metastatic
     Dosage: 315 MILLIGRAM, QD
     Route: 041
     Dates: start: 20220511, end: 20220511
  6. LEVOLEUCOVORIN CALCIUM [Suspect]
     Active Substance: LEVOLEUCOVORIN CALCIUM
     Dosage: 305 MILLIGRAM, QD
     Route: 041
     Dates: start: 20220601, end: 20220601
  7. LEVOLEUCOVORIN CALCIUM [Suspect]
     Active Substance: LEVOLEUCOVORIN CALCIUM
     Dosage: 300 MILLIGRAM, Q3WEEKS
     Route: 041
     Dates: start: 20220622, end: 20220831
  8. FLUOROURACIL [Suspect]
     Active Substance: FLUOROURACIL
     Indication: Colorectal cancer metastatic
     Dosage: 3785 MILLIGRAM, QD
     Route: 040
     Dates: start: 20220511, end: 20220511
  9. FLUOROURACIL [Suspect]
     Active Substance: FLUOROURACIL
     Dosage: 3670 MILLIGRAM, QD
     Route: 040
     Dates: start: 20220601, end: 20220601
  10. FLUOROURACIL [Suspect]
     Active Substance: FLUOROURACIL
     Dosage: 605 MILLIGRAM, Q3WK
     Route: 040
     Dates: start: 20220622, end: 20220713
  11. FLUOROURACIL [Suspect]
     Active Substance: FLUOROURACIL
     Dosage: 486 MILLIGRAM, QD
     Route: 040
     Dates: start: 20220803, end: 20220803
  12. FLUOROURACIL [Suspect]
     Active Substance: FLUOROURACIL
     Dosage: 605 MILLIGRAM, QD
     Route: 040
     Dates: start: 20220831, end: 20220831
  13. FLUOROURACIL [Suspect]
     Active Substance: FLUOROURACIL
     Dosage: 3650 MILLIGRAM, Q3WK
     Route: 040
     Dates: start: 20220622, end: 20220831
  14. DECADRON [Concomitant]
     Active Substance: DEXAMETHASONE
     Dosage: UNK
     Route: 065
  15. CHLORPHENIRAMINE MALEATE [Concomitant]
     Active Substance: CHLORPHENIRAMINE MALEATE
     Dosage: UNK
     Route: 065
  16. DEXAMETHASONE SODIUM PHOSPHATE [Concomitant]
     Active Substance: DEXAMETHASONE SODIUM PHOSPHATE
     Dosage: UNK
     Dates: start: 20220511
  17. PALONOSETRON [Concomitant]
     Active Substance: PALONOSETRON
     Dosage: UNK
     Route: 065
     Dates: start: 20220511
  18. MINOCYCLINE HYDROCHLORIDE [Concomitant]
     Active Substance: MINOCYCLINE HYDROCHLORIDE
     Indication: Product used for unknown indication
     Dosage: 100 MILLIGRAM, QD
     Route: 048
     Dates: start: 20220511, end: 20220615
  19. LEVOTHYROXINE SODIUM [Concomitant]
     Active Substance: LEVOTHYROXINE SODIUM
     Indication: Hypothyroidism
     Dosage: 25 MICROGRAM, QD
     Route: 048
     Dates: start: 20181218
  20. HEPARINOID [Concomitant]
     Dosage: UNK
     Route: 065

REACTIONS (8)
  - Subileus [Unknown]
  - Nausea [Recovering/Resolving]
  - Colorectal cancer metastatic [Unknown]
  - Metastases to peritoneum [Unknown]
  - Skin disorder [Recovering/Resolving]
  - Platelet count decreased [Unknown]
  - Weight decreased [Unknown]
  - White blood cell count decreased [Recovering/Resolving]

NARRATIVE: CASE EVENT DATE: 20220514
